FAERS Safety Report 6842894-6 (Version None)
Quarter: 2010Q3

REPORT INFORMATION
  Report Type: 
  Country: None (occurrence: None)
  Receive Date: 20100714
  Receipt Date: 20070811
  Transmission Date: 20110219
  Serious: No
  Sender: FDA-Public Use
  Company Number: US-PFIZER INC-2007066940

PATIENT
  Sex: Female
  Weight: 70.3 kg

DRUGS (7)
  1. CHANTIX [Suspect]
     Dates: start: 20070804, end: 20070811
  2. ALBUTEROL [Concomitant]
  3. CORTICOSTEROIDS [Concomitant]
  4. ADVAIR DISKUS 100/50 [Concomitant]
  5. SEREVENT [Concomitant]
  6. MONTELUKAST SODIUM [Concomitant]
  7. ZYRTEC [Concomitant]

REACTIONS (4)
  - HYPERHIDROSIS [None]
  - NAUSEA [None]
  - TREMOR [None]
  - VOMITING [None]
